FAERS Safety Report 4911836-2 (Version None)
Quarter: 2006Q1

REPORT INFORMATION
  Report Type: 
  Country: None (occurrence: None)
  Receive Date: 20060213
  Receipt Date: 20060213
  Transmission Date: 20060701
  Serious: No
  Sender: FDA-Public Use
  Company Number: None

PATIENT
  Age: 30 Year
  Sex: Female
  Weight: 58.9676 kg

DRUGS (1)
  1. MIRENA [Suspect]
     Indication: CONTRACEPTION
     Dates: start: 20051015, end: 20060201

REACTIONS (5)
  - ACNE [None]
  - HAEMORRHAGE [None]
  - PELVIC PAIN [None]
  - SUICIDAL IDEATION [None]
  - WEIGHT INCREASED [None]
